FAERS Safety Report 6110255-3 (Version None)
Quarter: 2009Q1

REPORT INFORMATION
  Report Type: 
  Country: None (occurrence: None)
  Receive Date: 20090309
  Receipt Date: 20090309
  Transmission Date: 20090719
  Serious: Yes (Other)
  Sender: FDA-Public Use
  Company Number: None

PATIENT
  Age: 46 Year
  Sex: Female
  Weight: 113.3993 kg

DRUGS (1)
  1. PROVERA [Suspect]
     Dosage: 1 TABLET 10 DAYS A MONTH
     Dates: start: 20071115, end: 20080118

REACTIONS (3)
  - BONE DISORDER [None]
  - GAIT DISTURBANCE [None]
  - JOINT STIFFNESS [None]
